FAERS Safety Report 5642633-0 (Version None)
Quarter: 2008Q1

REPORT INFORMATION
  Report Type: 
  Country: None (occurrence: None)
  Receive Date: 20080226
  Receipt Date: 20080111
  Transmission Date: 20080703
  Serious: Yes (Hospitalization)
  Sender: FDA-Public Use
  Company Number: 2008AL000914

PATIENT
  Age: 27 Year
  Sex: Male

DRUGS (5)
  1. RANITIDINE [Suspect]
     Dosage: 150 MG;BID;PO
     Route: 048
  2. CLOZARIL [Concomitant]
  3. HYOSCINE HBR HYT [Concomitant]
  4. VALPROIC ACID [Concomitant]
  5. COCAINE [Concomitant]

REACTIONS (7)
  - HYPOXIA [None]
  - LOWER RESPIRATORY TRACT INFECTION [None]
  - OVERDOSE [None]
  - PYREXIA [None]
  - RENAL FAILURE ACUTE [None]
  - TACHYCARDIA [None]
  - THROMBOCYTOPENIA [None]
